FAERS Safety Report 4275921-3 (Version None)
Quarter: 2004Q1

REPORT INFORMATION
  Report Type: 
  Country: None (occurrence: None)
  Receive Date: 20040121
  Receipt Date: 20030317
  Transmission Date: 20041129
  Serious: No
  Sender: FDA-Public Use
  Company Number: US-GLAXOSMITHKLINE-A0400625A

PATIENT
  Age: 53 Year
  Sex: Female

DRUGS (5)
  1. VALTREX [Suspect]
     Indication: CHRONIC FATIGUE SYNDROME
     Dosage: 1G FOUR TIMES PER DAY
     Route: 048
     Dates: start: 20000701
  2. LIPITOR [Concomitant]
     Dosage: 30MG PER DAY
     Route: 048
  3. ASPIRIN [Concomitant]
  4. MULTI-VITAMIN [Concomitant]
  5. XANAX [Concomitant]
     Dosage: .125MG AS REQUIRED

REACTIONS (2)
  - CHEST WALL PAIN [None]
  - NAUSEA [None]
